FAERS Safety Report 19103904 (Version 1)
Quarter: 2021Q2

REPORT INFORMATION
  Report Type: Spontaneous
  Country: CA (occurrence: CA)
  Receive Date: 20210407
  Receipt Date: 20210407
  Transmission Date: 20210717
  Serious: Yes (Death, Other)
  Sender: FDA-Public Use
  Company Number: CA-TEVA-2021-CA-1897690

PATIENT
  Age: 31 Year
  Sex: Female

DRUGS (18)
  1. ATIVAN [Suspect]
     Active Substance: LORAZEPAM
     Indication: BIPOLAR DISORDER
  2. METOCLOPRAMIDE. [Suspect]
     Active Substance: METOCLOPRAMIDE
     Indication: PROPHYLAXIS
     Route: 042
  3. SODIUM CITRATE. [Suspect]
     Active Substance: SODIUM CITRATE
     Indication: PROPHYLAXIS
     Route: 048
  4. THIOPENTAL SODIUM. [Suspect]
     Active Substance: THIOPENTAL SODIUM
     Indication: STATUS EPILEPTICUS
     Route: 042
  5. THIOPENTAL SODIUM. [Suspect]
     Active Substance: THIOPENTAL SODIUM
     Route: 042
  6. DIAZEPAM. [Suspect]
     Active Substance: DIAZEPAM
     Indication: STATUS EPILEPTICUS
     Route: 065
  7. GLUCOSE [Suspect]
     Active Substance: DEXTROSE
     Indication: PRODUCT USED FOR UNKNOWN INDICATION
     Route: 065
  8. MIDAZOLAM. [Suspect]
     Active Substance: MIDAZOLAM
     Indication: STATUS EPILEPTICUS
     Route: 065
  9. SUCCINYLCHOLINE CHLORIDE. [Suspect]
     Active Substance: SUCCINYLCHOLINE CHLORIDE
     Indication: ENDOTRACHEAL INTUBATION
     Route: 065
  10. APO?LORAZEPAM [Suspect]
     Active Substance: LORAZEPAM
     Indication: STATUS EPILEPTICUS
     Route: 065
  11. ATIVAN [Suspect]
     Active Substance: LORAZEPAM
     Indication: STATUS EPILEPTICUS
     Route: 065
  12. PAROXETINE HYDROCHLORIDE. [Suspect]
     Active Substance: PAROXETINE HYDROCHLORIDE
     Indication: BIPOLAR DISORDER
     Route: 065
  13. PROPOFOL. [Suspect]
     Active Substance: PROPOFOL
     Indication: STATUS EPILEPTICUS
     Route: 042
  14. MAGNESIUM SULFATE. [Suspect]
     Active Substance: MAGNESIUM SULFATE
     Indication: STATUS EPILEPTICUS
     Route: 065
  15. MAGNESIUM SULFATE. [Suspect]
     Active Substance: MAGNESIUM SULFATE
     Route: 065
  16. DEXTROSE. [Suspect]
     Active Substance: DEXTROSE
     Indication: PRODUCT USED FOR UNKNOWN INDICATION
     Route: 042
  17. PHENYTOIN. [Suspect]
     Active Substance: PHENYTOIN
     Indication: STATUS EPILEPTICUS
     Route: 065
  18. THIOPENTAL SODIUM. [Suspect]
     Active Substance: THIOPENTAL SODIUM
     Indication: ENDOTRACHEAL INTUBATION
     Route: 042

REACTIONS (18)
  - Renal impairment [Fatal]
  - Renal ischaemia [Fatal]
  - Left ventricular dysfunction [Fatal]
  - Oxygen saturation abnormal [Fatal]
  - Off label use [Fatal]
  - Drug ineffective [Fatal]
  - Blood magnesium decreased [Fatal]
  - Diabetes insipidus [Fatal]
  - Maternal exposure during pregnancy [Fatal]
  - Encephalopathy [Fatal]
  - PO2 increased [Fatal]
  - Blood bicarbonate decreased [Fatal]
  - Loss of consciousness [Fatal]
  - Foetal death [Fatal]
  - Blood pH decreased [Fatal]
  - PCO2 increased [Fatal]
  - Blood calcium decreased [Fatal]
  - Hypotension [Fatal]
